FAERS Safety Report 12895071 (Version 1)
Quarter: 2016Q4

REPORT INFORMATION
  Report Type: Report from Study
  Country: US (occurrence: US)
  Receive Date: 20161029
  Receipt Date: 20161029
  Transmission Date: 20170207
  Serious: Yes (Hospitalization, Other)
  Sender: FDA-Public Use
  Company Number: US-AMGEN-USASL2016149475

PATIENT
  Age: 68 Year
  Sex: Female

DRUGS (1)
  1. ENBREL [Suspect]
     Active Substance: ETANERCEPT
     Indication: RHEUMATOID ARTHRITIS
     Dosage: UNK
     Route: 065

REACTIONS (7)
  - Coronary arterial stent insertion [Unknown]
  - Nausea [Unknown]
  - Vomiting [Unknown]
  - Confusional state [Not Recovered/Not Resolved]
  - Hyperhidrosis [Unknown]
  - Incorrect product storage [Unknown]
  - Chest pain [Unknown]
